FAERS Safety Report 21836056 (Version 2)
Quarter: 2023Q1

REPORT INFORMATION
  Report Type: Spontaneous
  Country: US (occurrence: US)
  Receive Date: 20230109
  Receipt Date: 20230220
  Transmission Date: 20230418
  Serious: Yes (Death, Hospitalization, Other)
  Sender: FDA-Public Use
  Company Number: US-BoehringerIngelheim-2023-BI-211409

PATIENT
  Sex: Male

DRUGS (1)
  1. GILOTRIF [Suspect]
     Active Substance: AFATINIB
     Indication: Product used for unknown indication

REACTIONS (5)
  - Death [Fatal]
  - Pneumothorax [Unknown]
  - Malignant neoplasm progression [Not Recovered/Not Resolved]
  - Decubitus ulcer [Unknown]
  - Back pain [Unknown]

NARRATIVE: CASE EVENT DATE: 20221227
